FAERS Safety Report 18790800 (Version 7)
Quarter: 2021Q3

REPORT INFORMATION
  Report Type: Report from Study
  Country: CO (occurrence: CO)
  Receive Date: 20210126
  Receipt Date: 20210924
  Transmission Date: 20211014
  Serious: Yes (Other)
  Sender: FDA-Public Use
  Company Number: CO-TAKEDA-CO202028048

PATIENT
  Age: 54 Year
  Sex: Female
  Weight: 72 kg

DRUGS (8)
  1. ICATIBANT [Suspect]
     Active Substance: ICATIBANT ACETATE
     Indication: HEREDITARY ANGIOEDEMA
     Dosage: 30 MG / 3 ML, OTHER (EVERY 6 HOURS)
     Route: 058
     Dates: start: 20150102
  2. ICATIBANT [Suspect]
     Active Substance: ICATIBANT ACETATE
     Dosage: 1 DOSAGE FORM (30 MG/3ML), EVERY 6 HOURS, MAXIMUM 3 DOSES IN 24 HOURS
     Route: 058
     Dates: start: 20150102
  3. ICATIBANT [Suspect]
     Active Substance: ICATIBANT ACETATE
     Dosage: 30 MILLIGRAM PER 3 MILLILITRE, Q6HR
     Route: 058
     Dates: start: 20150102
  4. ICATIBANT [Suspect]
     Active Substance: ICATIBANT ACETATE
     Indication: HEREDITARY ANGIOEDEMA
     Dosage: 30 MG / 3 ML, OTHER (EVERY 6 HOURS)
     Route: 058
     Dates: start: 20150102
  5. ICATIBANT [Suspect]
     Active Substance: ICATIBANT ACETATE
     Dosage: 30 MILLIGRAM/3ML, AS REQ^D
     Route: 058
     Dates: start: 20200914
  6. ICATIBANT [Suspect]
     Active Substance: ICATIBANT ACETATE
     Dosage: 30 MILLIGRAM/3ML, AS REQ^D
     Route: 058
     Dates: start: 20200914
  7. ICATIBANT [Suspect]
     Active Substance: ICATIBANT ACETATE
     Dosage: 30 MILLIGRAM PER 3 MILLILITRE, Q6HR
     Route: 058
     Dates: start: 20150102
  8. ICATIBANT [Suspect]
     Active Substance: ICATIBANT ACETATE
     Dosage: 1 DOSAGE FORM (30 MG/3ML), EVERY 6 HOURS, MAXIMUM 3 DOSES IN 24 HOURS
     Route: 058
     Dates: start: 20150102

REACTIONS (12)
  - Asthenia [Recovering/Resolving]
  - Pain [Not Recovered/Not Resolved]
  - Diarrhoea [Recovered/Resolved]
  - COVID-19 [Recovered/Resolved]
  - Rotator cuff syndrome [Not Recovered/Not Resolved]
  - Weight increased [Unknown]
  - Pain in extremity [Recovering/Resolving]
  - Weight decreased [Unknown]
  - Arthralgia [Not Recovered/Not Resolved]
  - Bursitis [Not Recovered/Not Resolved]
  - Nephrolithiasis [Not Recovered/Not Resolved]
  - Urinary tract infection [Unknown]

NARRATIVE: CASE EVENT DATE: 20201109
